FAERS Safety Report 18992144 (Version 1)
Quarter: 2021Q1

REPORT INFORMATION
  Report Type: Spontaneous
  Country: US (occurrence: US)
  Receive Date: 20210310
  Receipt Date: 20210310
  Transmission Date: 20210420
  Serious: Yes (Hospitalization)
  Sender: FDA-Public Use
  Company Number: None

PATIENT
  Age: 72 Year
  Sex: Female
  Weight: 61.2 kg

DRUGS (1)
  1. DOXIL [Suspect]
     Active Substance: DOXORUBICIN HYDROCHLORIDE
     Indication: NEOPLASM MALIGNANT
     Dosage: ?          OTHER FREQUENCY:ONCE;?
     Route: 041
     Dates: start: 20210224, end: 20210224

REACTIONS (6)
  - Blood glucose increased [None]
  - Respiratory rate increased [None]
  - Infusion related reaction [None]
  - Lethargy [None]
  - Nausea [None]
  - Unresponsive to stimuli [None]

NARRATIVE: CASE EVENT DATE: 20210224
